FAERS Safety Report 10560685 (Version 1)
Quarter: 2014Q4

REPORT INFORMATION
  Report Type: Spontaneous
  Country: US (occurrence: US)
  Receive Date: 20141103
  Receipt Date: 20141103
  Transmission Date: 20150529
  Serious: No
  Sender: FDA-Public Use
  Company Number: US-PFIZER INC-2014299451

PATIENT
  Age: 33 Year
  Sex: Female

DRUGS (2)
  1. GILENYA [Interacting]
     Active Substance: FINGOLIMOD HYDROCHLORIDE
     Dosage: UNK
  2. SOLU-MEDROL [Suspect]
     Active Substance: METHYLPREDNISOLONE SODIUM SUCCINATE
     Dosage: UNK

REACTIONS (1)
  - Drug interaction [Unknown]
